FAERS Safety Report 24814533 (Version 1)
Quarter: 2025Q1

REPORT INFORMATION
  Report Type: Spontaneous
  Country: FR (occurrence: FR)
  Receive Date: 20250107
  Receipt Date: 20250107
  Transmission Date: 20250409
  Serious: Yes (Life-Threatening, Hospitalization)
  Sender: MYLAN
  Company Number: None

PATIENT
  Age: 47 Year
  Sex: Male

DRUGS (3)
  1. REMIFENTANIL [Suspect]
     Active Substance: REMIFENTANIL
     Indication: Nasal septal operation
     Route: 042
     Dates: start: 20240828, end: 20240828
  2. PROPOFOL [Suspect]
     Active Substance: PROPOFOL
     Indication: Nasal septal operation
     Route: 042
     Dates: start: 20240828, end: 20240828
  3. AUGMENTIN [Suspect]
     Active Substance: AMOXICILLIN\CLAVULANATE POTASSIUM
     Indication: Nasal septal operation
     Route: 042
     Dates: start: 20240828, end: 20240828

REACTIONS (1)
  - Anaphylactic shock [Not Recovered/Not Resolved]

NARRATIVE: CASE EVENT DATE: 20240828
